FAERS Safety Report 9409465 (Version 2)
Quarter: 2013Q3

REPORT INFORMATION
  Report Type: Spontaneous
  Country: CA (occurrence: CA)
  Receive Date: 20130719
  Receipt Date: 20130809
  Transmission Date: 20140515
  Serious: Yes (Hospitalization)
  Sender: FDA-Public Use
  Company Number: CA-AMGEN-CANSP2013050102

PATIENT
  Age: 87 Year
  Sex: Female
  Weight: 43.99 kg

DRUGS (10)
  1. PROLIA [Suspect]
     Indication: OSTEOPOROSIS POSTMENOPAUSAL
     Dosage: 60 MG, Q6MO
     Route: 058
     Dates: start: 20111212
  2. DIOVAN [Concomitant]
     Dosage: 12.5 MG, UNK
     Dates: start: 20111109
  3. CI-CAL D [Concomitant]
     Dosage: 500 MG, BID
     Dates: start: 20111109
  4. AVELOX                             /01278901/ [Concomitant]
     Dosage: 400 MG, UNK
     Dates: start: 20130103
  5. APO-CLONIDINE [Concomitant]
     Dosage: 0.1 MG, UNK
     Dates: start: 20111109
  6. APO-VERAP [Concomitant]
     Dosage: 120 MG, TID
     Dates: start: 20111109
  7. ACETAMINOPHEN [Concomitant]
     Dosage: 500 MG, QID,PRN
     Dates: start: 20111109
  8. APO-PREDNISONE [Concomitant]
     Dosage: 50 MG, UNK
     Dates: start: 20121101
  9. ATROVENT HFA [Concomitant]
     Dosage: 20 MUG, UNK
     Dates: start: 20111109
  10. VITALUX                            /00322001/ [Concomitant]
     Dosage: UNK
     Dates: start: 20111109

REACTIONS (4)
  - Osteoarthritis [Not Recovered/Not Resolved]
  - Blood potassium abnormal [Not Recovered/Not Resolved]
  - Hypertension [Not Recovered/Not Resolved]
  - Blood potassium decreased [Recovered/Resolved]
